FAERS Safety Report 21833602 (Version 1)
Quarter: 2023Q1

REPORT INFORMATION
  Report Type: Spontaneous
  Country: RO (occurrence: RO)
  Receive Date: 20230107
  Receipt Date: 20230107
  Transmission Date: 20230418
  Serious: Yes (Life-Threatening, Hospitalization, Other)
  Sender: FDA-Public Use
  Company Number: RO-Accord-295426

PATIENT
  Age: 21 Year
  Sex: Male

DRUGS (5)
  1. ARIPIPRAZOLE [Suspect]
     Active Substance: ARIPIPRAZOLE
     Indication: Depression
  2. TRAZODONE [Suspect]
     Active Substance: TRAZODONE HYDROCHLORIDE
     Indication: Depression
  3. VALPROATE SODIUM [Suspect]
     Active Substance: VALPROATE SODIUM
     Indication: Depression
  4. LORAZEPAM [Suspect]
     Active Substance: LORAZEPAM
     Dosage: STRENGTH: 1 MG
  5. OLANZAPINE [Suspect]
     Active Substance: OLANZAPINE
     Dosage: STRENGTH: 5 MG

REACTIONS (6)
  - Fixed eruption [Recovering/Resolving]
  - Serotonin syndrome [Recovering/Resolving]
  - Loss of consciousness [Recovering/Resolving]
  - Intentional overdose [Unknown]
  - Prescription drug used without a prescription [Unknown]
  - Off label use [Unknown]
